FAERS Safety Report 23738938 (Version 1)
Quarter: 2024Q2

REPORT INFORMATION
  Report Type: Spontaneous
  Country: US (occurrence: US)
  Receive Date: 20240413
  Receipt Date: 20240413
  Transmission Date: 20240716
  Serious: No
  Sender: FDA-Public Use
  Company Number: US-ABBVIE-5715173

PATIENT
  Sex: Male

DRUGS (2)
  1. LINZESS [Suspect]
     Active Substance: LINACLOTIDE
     Indication: Product used for unknown indication
     Dosage: FORM STRENGTH: 145MCG CAP
     Route: 048
  2. LINZESS [Suspect]
     Active Substance: LINACLOTIDE
     Indication: Product used for unknown indication
     Dosage: FORM STRENGTH: 145MCG CAP
     Route: 048

REACTIONS (3)
  - Flatulence [Unknown]
  - Constipation [Unknown]
  - Diarrhoea [Unknown]
